FAERS Safety Report 8793891 (Version 2)
Quarter: 2012Q4

REPORT INFORMATION
  Report Type: 
  Country: US (occurrence: US)
  Receive Date: 20120918
  Receipt Date: 20121001
  Transmission Date: 20130627
  Serious: No
  Sender: FDA-Public Use
  Company Number: US-009507513-1209USA000183

PATIENT
  Sex: Male

DRUGS (2)
  1. PEGINTRON [Suspect]
     Indication: HEPATITIS C
     Dosage: Redipen
     Dates: start: 20120807
  2. REBETOL [Suspect]
     Indication: HEPATITIS C
     Dosage: UNK
     Dates: start: 20120807

REACTIONS (10)
  - Influenza [Unknown]
  - Night sweats [Unknown]
  - Chills [Unknown]
  - Diarrhoea [Unknown]
  - Nausea [Unknown]
  - Fatigue [Unknown]
  - White blood cell count decreased [Unknown]
  - Influenza like illness [Unknown]
  - Red blood cell count decreased [Unknown]
  - White blood cell analysis abnormal [Unknown]
